FAERS Safety Report 23863919 (Version 1)
Quarter: 2024Q2

REPORT INFORMATION
  Report Type: Other
  Country: CN (occurrence: CN)
  Receive Date: 20240516
  Receipt Date: 20240516
  Transmission Date: 20240716
  Serious: Yes (Hospitalization, Other)
  Sender: FDA-Public Use
  Company Number: CN-Bion-013065

PATIENT
  Age: 25 Year
  Sex: Female

DRUGS (1)
  1. CETIRIZINE [Suspect]
     Active Substance: CETIRIZINE HYDROCHLORIDE
     Indication: Product used for unknown indication

REACTIONS (2)
  - Drug-induced liver injury [Unknown]
  - Acute hepatic failure [Unknown]
